FAERS Safety Report 13719879 (Version 1)
Quarter: 2017Q3

REPORT INFORMATION
  Report Type: Other
  Country: None (occurrence: US)
  Receive Date: 20170705
  Receipt Date: 20170705
  Transmission Date: 20171127
  Serious: Yes (Other)
  Sender: FDA-Public Use
  Company Number: US-GUTHY-RENKER LLC-2022968

PATIENT
  Age: 69 Year
  Sex: Male

DRUGS (7)
  1. PROACTIVPLUS SKIN SMOOTHING EXFOLIATOR [Suspect]
     Active Substance: BENZOYL PEROXIDE
     Indication: ACNE
     Route: 061
     Dates: start: 20160406, end: 20160410
  2. PROACTIV PLUS PORE TARGETING TREATMENT [Suspect]
     Active Substance: BENZOYL PEROXIDE
     Route: 061
     Dates: start: 20160406, end: 20160410
  3. PROACTIV PLUS COMPLEXION PERFECTING HYDRATOR [Suspect]
     Active Substance: SALICYLIC ACID
     Route: 061
     Dates: start: 20160406, end: 20160410
  4. CENTRUM SILVER MULTI VITAMIN, AND A PROBIOTIC [Concomitant]
  5. UNDISCLOSED MEDICATIONS FOR HEART, BP, CHOLESTEROL, PROSTATE [Concomitant]
  6. 3 INHALERS USED ROUTINELY, 1 RESCUE INHALER PRN [Concomitant]
  7. PROACTIV SOLUTION BLACKHEAD DISSOLVING [Suspect]
     Active Substance: SALICYLIC ACID
     Route: 061
     Dates: start: 20160406

REACTIONS (1)
  - Asthma [Recovered/Resolved]

NARRATIVE: CASE EVENT DATE: 20160406
